FAERS Safety Report 11044092 (Version 2)
Quarter: 2015Q3

REPORT INFORMATION
  Report Type: Spontaneous
  Country: US (occurrence: US)
  Receive Date: 20150417
  Receipt Date: 20150701
  Transmission Date: 20151125
  Serious: Yes (Hospitalization, Congenital Anomaly, Other)
  Sender: FDA-Public Use
  Company Number: US-GLAXOSMITHKLINE-US2015GSK052274

PATIENT
  Sex: Female

DRUGS (2)
  1. ZOFRAN [Suspect]
     Active Substance: ONDANSETRON HYDROCHLORIDE
     Indication: NAUSEA
  2. ZOFRAN [Suspect]
     Active Substance: ONDANSETRON HYDROCHLORIDE
     Indication: VOMITING IN PREGNANCY
     Dosage: UNK
     Route: 064

REACTIONS (16)
  - Congenital ureteric anomaly [Unknown]
  - Lesion excision [Unknown]
  - Urinary tract infection [Unknown]
  - Congenital musculoskeletal anomaly [Unknown]
  - Gait disturbance [Unknown]
  - Foetal exposure during pregnancy [Unknown]
  - Pyrexia [Unknown]
  - Renal surgery [Unknown]
  - Congenital skin disorder [Unknown]
  - Urinary tract malformation [Unknown]
  - Infection [Unknown]
  - Scar [Unknown]
  - General physical health deterioration [Unknown]
  - Malaise [Unknown]
  - Tremor [Unknown]
  - Jaundice [Unknown]
